FAERS Safety Report 26185858 (Version 1)
Quarter: 2025Q4

REPORT INFORMATION
  Report Type: Report from Study
  Country: US (occurrence: US)
  Receive Date: 20251222
  Receipt Date: 20251222
  Transmission Date: 20260117
  Serious: Yes (Other)
  Sender: TAKEDA
  Company Number: US-TAKEDA-2025TUS114369

PATIENT
  Age: 69 Year
  Sex: Male

DRUGS (1)
  1. VEDOLIZUMAB [Suspect]
     Active Substance: VEDOLIZUMAB
     Indication: Product used for unknown indication
     Dosage: 300 MILLIGRAM, Q4WEEKS

REACTIONS (7)
  - Anal stenosis [Unknown]
  - Hepatic cirrhosis [Unknown]
  - Faeces soft [Unknown]
  - Diarrhoea [Unknown]
  - Memory impairment [Unknown]
  - Hepatic steatosis [Unknown]
  - Haemorrhoids [Unknown]
